FAERS Safety Report 7137792-7 (Version None)
Quarter: 2010Q4

REPORT INFORMATION
  Report Type: 
  Country: None (occurrence: None)
  Receive Date: 20101103
  Receipt Date: 20100505
  Transmission Date: 20110411
  Serious: Yes (Hospitalization)
  Sender: FDA-Public Use
  Company Number: 2010S1000222

PATIENT
  Age: 47 Year
  Sex: Male
  Weight: 144.5 kg

DRUGS (11)
  1. CUBICIN [Suspect]
     Indication: DIABETIC FOOT INFECTION
     Dosage: 6.9 MG/KG; Q24H; IV
     Route: 042
     Dates: start: 20090514, end: 20090604
  2. CUBICIN [Suspect]
     Indication: OSTEOMYELITIS
     Dosage: 6.9 MG/KG; Q24H; IV
     Route: 042
     Dates: start: 20090514, end: 20090604
  3. CUBICIN [Suspect]
     Indication: STAPHYLOCOCCAL INFECTION
     Dosage: 6.9 MG/KG; Q24H; IV
     Route: 042
     Dates: start: 20090514, end: 20090604
  4. CLINDAMYCIN [Suspect]
     Indication: DIABETIC FOOT INFECTION
     Dosage: 900 MG; Q8H; IV
     Route: 042
     Dates: start: 20090514, end: 20090604
  5. CLINDAMYCIN [Suspect]
     Indication: OSTEOMYELITIS
     Dosage: 900 MG; Q8H; IV
     Route: 042
     Dates: start: 20090514, end: 20090604
  6. HUMULIN /01040301/ [Concomitant]
  7. LANTUS [Concomitant]
  8. METOPROLOL TARTRATE [Concomitant]
  9. METFORMIN [Concomitant]
  10. PERCOCET [Concomitant]
  11. NAPROXEN [Concomitant]

REACTIONS (6)
  - ANXIETY [None]
  - EOSINOPHILIC PNEUMONIA [None]
  - FALL [None]
  - HYPERGLYCAEMIA [None]
  - HYPERHIDROSIS [None]
  - LETHARGY [None]
